FAERS Safety Report 20890003 (Version 2)
Quarter: 2022Q2

REPORT INFORMATION
  Report Type: Report from Study
  Country: CL (occurrence: CL)
  Receive Date: 20220530
  Receipt Date: 20220603
  Transmission Date: 20220721
  Serious: Yes (Other)
  Sender: FDA-Public Use
  Company Number: CL-NOVARTISPH-NVSC2022CL108416

PATIENT
  Age: 14 Year
  Sex: Male
  Weight: 46 kg

DRUGS (2)
  1. OMNITROPE [Suspect]
     Active Substance: SOMATROPIN
     Indication: Body height abnormal
     Dosage: 5.1 IU, QD
     Route: 058
     Dates: start: 20210410, end: 20220403
  2. OMNITROPE [Suspect]
     Active Substance: SOMATROPIN
     Dosage: 2.8, QD
     Route: 058
     Dates: end: 20220515

REACTIONS (2)
  - Incorrect dose administered [Not Recovered/Not Resolved]
  - Device defective [Unknown]

NARRATIVE: CASE EVENT DATE: 20210410
